FAERS Safety Report 8167945-0 (Version None)
Quarter: 2012Q1

REPORT INFORMATION
  Report Type: 
  Country: None (occurrence: None)
  Receive Date: 20120227
  Receipt Date: 20120221
  Transmission Date: 20120608
  Serious: Yes (Hospitalization)
  Sender: FDA-Public Use
  Company Number: US-GLAXOSMITHKLINE-A0967024A

PATIENT
  Age: 15 Year
  Sex: Male

DRUGS (3)
  1. REVATIO [Concomitant]
     Dosage: 20MG THREE TIMES PER DAY
  2. TRACLEER [Concomitant]
     Dosage: 62.5MG TWICE PER DAY
  3. FLOLAN [Suspect]
     Indication: VENTRICULAR SEPTAL DEFECT
     Dosage: 59NGKM SEE DOSAGE TEXT
     Route: 042
     Dates: start: 20020909

REACTIONS (2)
  - ELECTROLYTE IMBALANCE [None]
  - OFF LABEL USE [None]
